FAERS Safety Report 20972297 (Version 1)
Quarter: 2022Q2

REPORT INFORMATION
  Report Type: Spontaneous
  Country: GB (occurrence: GB)
  Receive Date: 20220616
  Receipt Date: 20220616
  Transmission Date: 20220721
  Serious: Yes (Hospitalization)
  Sender: FDA-Public Use
  Company Number: GB-drreddys-LIT/UKI/22/0151275

PATIENT
  Age: 81 Year
  Sex: Male

DRUGS (6)
  1. BORTEZOMIB [Suspect]
     Active Substance: BORTEZOMIB
     Indication: Plasma cell myeloma
     Dates: start: 201909
  2. BORTEZOMIB [Suspect]
     Active Substance: BORTEZOMIB
     Dates: start: 202001
  3. PREDNISOLONE [Suspect]
     Active Substance: PREDNISOLONE
     Indication: Plasma cell myeloma
     Dates: start: 201909
  4. PREDNISOLONE [Suspect]
     Active Substance: PREDNISOLONE
     Dates: start: 202001
  5. MELPHALAN [Suspect]
     Active Substance: MELPHALAN
     Indication: Plasma cell myeloma
     Dates: start: 201909
  6. MELPHALAN [Suspect]
     Active Substance: MELPHALAN
     Dates: start: 202001

REACTIONS (2)
  - Toxicity to various agents [Recovered/Resolved]
  - Myositis [Recovered/Resolved]
